FAERS Safety Report 18017850 (Version 1)
Quarter: 2020Q3

REPORT INFORMATION
  Report Type: Spontaneous
  Country: SE (occurrence: SE)
  Receive Date: 20200714
  Receipt Date: 20200714
  Transmission Date: 20201103
  Serious: Yes (Other)
  Sender: FDA-Public Use
  Company Number: SE-SUN PHARMACEUTICAL INDUSTRIES LTD-2020RR-253470

PATIENT
  Age: 53 Year
  Sex: Female

DRUGS (4)
  1. GEMCITABINE. [Suspect]
     Active Substance: GEMCITABINE
     Indication: METASTASES TO LUNG
     Dosage: 1,000 MG/M2,ON DAY 1 AND DAY 8, AND A NEW CYCLE ON 29
     Route: 065
  2. CISPLATIN. [Suspect]
     Active Substance: CISPLATIN
     Indication: METASTASES TO LUNG
     Dosage: 25 MG/M2,ON DAY 1 AND DAY 8, AND A NEW CYCLE ON 29
     Route: 065
  3. PREDNISOLONE. [Suspect]
     Active Substance: PREDNISOLONE
     Indication: METASTASES TO LUNG
     Dosage: 80 MILLIGRAM, DOSE REDUCTIONS BY 5?10 MG
     Route: 065
  4. PREDNISOLONE. [Suspect]
     Active Substance: PREDNISOLONE
     Dosage: 40 MILLIGRAM, DOSE REDUCTIONS BY 5?10 MG
     Route: 065

REACTIONS (2)
  - Drug dependence [Unknown]
  - Alpha 1 foetoprotein increased [Recovered/Resolved]
